FAERS Safety Report 15760488 (Version 6)
Quarter: 2019Q1

REPORT INFORMATION
  Report Type: Report from Study
  Country: FI (occurrence: FI)
  Receive Date: 20181226
  Receipt Date: 20190329
  Transmission Date: 20190417
  Serious: Yes (Other)
  Sender: FDA-Public Use
  Company Number: FI-MYLANLABS-2018M1088247

PATIENT
  Age: 38 Year
  Sex: Male

DRUGS (17)
  1. LEPONEX [Suspect]
     Active Substance: CLOZAPINE
     Dosage: UNK
     Dates: start: 20181101
  2. LEPONEX [Suspect]
     Active Substance: CLOZAPINE
     Dosage: 150 MILLIGRAM, QD
     Dates: start: 201811, end: 20181121
  3. ATIVAN [Concomitant]
     Active Substance: LORAZEPAM
     Indication: PRODUCT USED FOR UNKNOWN INDICATION
     Dosage: 2-4 MILLIGRAM, IF NEEDED
     Route: 030
  4. LEPONEX [Suspect]
     Active Substance: CLOZAPINE
     Dosage: 12.5 MILLIGRAM, QD
     Dates: start: 20181026, end: 2018
  5. KETIPINOR [Concomitant]
     Active Substance: QUETIAPINE FUMARATE
     Indication: PRODUCT USED FOR UNKNOWN INDICATION
     Dosage: 25 MILLIGRAM, 1-4 TIMES A DAY IF NEEDED
  6. PROPRAL [Concomitant]
     Indication: PRODUCT USED FOR UNKNOWN INDICATION
     Dosage: 20 MILLIGRAM, 1-3 TIMES A DAY IF NEEDED
  7. BURANA [Concomitant]
     Active Substance: IBUPROFEN
     Indication: PRODUCT USED FOR UNKNOWN INDICATION
     Dosage: 400 MILLIGRAM, TID
  8. LEPONEX [Suspect]
     Active Substance: CLOZAPINE
     Dosage: 175 MILLIGRAM, QD
     Dates: start: 2019, end: 201902
  9. RISPERIDONE. [Concomitant]
     Active Substance: RISPERIDONE
     Indication: PRODUCT USED FOR UNKNOWN INDICATION
     Dosage: 6 MILLIGRAM, QD
  10. AKINETON [Concomitant]
     Active Substance: BIPERIDEN HYDROCHLORIDE
     Indication: PRODUCT USED FOR UNKNOWN INDICATION
     Dosage: 5 MILLIGRAM, 1-2 TIMES A DAY IF NEEDED
  11. LEPONEX [Suspect]
     Active Substance: CLOZAPINE
     Indication: SCHIZOPHRENIA
     Dosage: 150 MILLIGRAM, QD
     Dates: start: 201810
  12. LEPONEX [Suspect]
     Active Substance: CLOZAPINE
     Dosage: UNK
     Dates: start: 20190114, end: 2019
  13. TEMESTA                            /00273201/ [Concomitant]
     Active Substance: LORAZEPAM
     Indication: PRODUCT USED FOR UNKNOWN INDICATION
     Dosage: 1 MILLIGRAM, TID
  14. LEPONEX [Suspect]
     Active Substance: CLOZAPINE
     Dosage: UNK
     Dates: start: 2018, end: 201811
  15. LEPONEX [Suspect]
     Active Substance: CLOZAPINE
     Dosage: 150 MILLIGRAM, QD
     Dates: start: 20181109, end: 20181122
  16. LEVOMEPROMAZINE [Concomitant]
     Active Substance: LEVOMEPROMAZINE
     Indication: PRODUCT USED FOR UNKNOWN INDICATION
     Dosage: 25 MILLIGRAM, 1-4 TIMES A DAY IF NEEDED
  17. SERENASE                           /00027401/ [Concomitant]
     Active Substance: HALOPERIDOL
     Indication: PRODUCT USED FOR UNKNOWN INDICATION
     Dosage: 5 MILLIGRAM, 1-2 TIMES A DAY IF NEEDED
     Route: 030

REACTIONS (11)
  - Eosinophilic colitis [Recovered/Resolved]
  - Vomiting [Unknown]
  - Diarrhoea [Unknown]
  - White blood cell count increased [Recovered/Resolved]
  - Charcot-Leyden crystals [Unknown]
  - Eosinophilia [Not Recovered/Not Resolved]
  - Pyrexia [Not Recovered/Not Resolved]
  - C-reactive protein increased [Not Recovered/Not Resolved]
  - Abdominal pain [Recovered/Resolved]
  - Schizophrenia [Unknown]
  - Tachycardia [Not Recovered/Not Resolved]

NARRATIVE: CASE EVENT DATE: 201811
